FAERS Safety Report 7756720-4 (Version None)
Quarter: 2011Q3

REPORT INFORMATION
  Report Type: 
  Country: None (occurrence: None)
  Receive Date: 20110916
  Receipt Date: 20110909
  Transmission Date: 20111222
  Serious: Yes (Other)
  Sender: FDA-Public Use
  Company Number: JP-ALLERGAN-1112117US

PATIENT
  Sex: Female

DRUGS (2)
  1. BOTOX [Suspect]
     Route: 030
     Dates: start: 20110501, end: 20110501
  2. BOTOX [Suspect]
     Indication: FACIAL SPASM
     Route: 030
     Dates: start: 20110902, end: 20110902

REACTIONS (2)
  - MUSCULAR WEAKNESS [None]
  - DYSARTHRIA [None]
